FAERS Safety Report 24961271 (Version 1)
Quarter: 2025Q1

REPORT INFORMATION
  Report Type: Spontaneous
  Country: US (occurrence: US)
  Receive Date: 20250212
  Receipt Date: 20250212
  Transmission Date: 20250408
  Serious: No
  Sender: CALLIDITAS THERAPEUTICS AB
  Company Number: US-Calliditas-2025CAL00174

PATIENT
  Age: 61 Year
  Sex: Male

DRUGS (5)
  1. TARPEYO [Suspect]
     Active Substance: BUDESONIDE
     Indication: IgA nephropathy
     Route: 048
     Dates: start: 20240723
  2. VITAMINS [Concomitant]
     Active Substance: VITAMINS
  3. ENALAPRIL [Concomitant]
     Active Substance: ENALAPRIL
  4. ALLOPURINOL [Concomitant]
     Active Substance: ALLOPURINOL
  5. LIPITOR [Concomitant]
     Active Substance: ATORVASTATIN CALCIUM

REACTIONS (3)
  - Product dose omission issue [Recovered/Resolved]
  - Muscle spasms [Not Recovered/Not Resolved]
  - Contusion [Not Recovered/Not Resolved]

NARRATIVE: CASE EVENT DATE: 20250121
